FAERS Safety Report 5001972-7 (Version None)
Quarter: 2006Q2

REPORT INFORMATION
  Report Type: 
  Country: None (occurrence: None)
  Receive Date: 20060515
  Receipt Date: 20060117
  Transmission Date: 20061013
  Serious: Yes (Hospitalization, Disabling)
  Sender: FDA-Public Use
  Company Number: US-MERCK-0601USA02150

PATIENT
  Age: 56 Year
  Sex: Male
  Weight: 88 kg

DRUGS (18)
  1. VIOXX [Suspect]
     Indication: ARTHRITIS
     Route: 048
     Dates: start: 19990101, end: 20040901
  2. VIOXX [Suspect]
     Indication: PAIN
     Route: 048
     Dates: start: 19990101, end: 20040901
  3. PRILOSEC [Concomitant]
     Indication: GASTROOESOPHAGEAL REFLUX DISEASE
     Route: 065
  4. MOTRIN [Concomitant]
     Indication: PAIN
     Route: 065
  5. AUGMENTIN '125' [Concomitant]
     Indication: INFECTION
     Route: 065
  6. ULTRACEF [Concomitant]
     Indication: PAIN
     Route: 065
  7. VIBRAMYCIN (DOXYCYCLINE CALCIUM) [Concomitant]
     Indication: INFECTION
     Route: 065
  8. MUCO-FEN DM [Concomitant]
     Indication: NASAL DECONGESTION THERAPY
     Route: 065
  9. CEPHALEXIN [Concomitant]
     Route: 065
  10. CYCLOBENZAPRINE HYDROCHLORIDE [Concomitant]
     Route: 065
  11. PROMETHAZINE [Concomitant]
     Indication: NAUSEA
     Route: 065
  12. PROMETHAZINE [Concomitant]
     Indication: HYPERSENSITIVITY
     Route: 065
  13. AVELOX [Concomitant]
     Route: 065
  14. PREDNISONE [Concomitant]
     Route: 065
  15. LEVAQUIN [Concomitant]
     Indication: INFECTION
     Route: 065
  16. ZITHROMAX [Concomitant]
     Indication: INFECTION
     Route: 065
  17. TRIMOX [Concomitant]
     Indication: GASTROOESOPHAGEAL REFLUX DISEASE
     Route: 065
  18. ALLEGRA [Concomitant]
     Indication: NASAL DECONGESTION THERAPY
     Route: 065

REACTIONS (12)
  - ACUTE CORONARY SYNDROME [None]
  - ANXIETY DISORDER [None]
  - BENIGN PROSTATIC HYPERPLASIA [None]
  - CARPAL TUNNEL SYNDROME [None]
  - CHEST PAIN [None]
  - CORONARY ARTERY DISEASE [None]
  - DRUG HYPERSENSITIVITY [None]
  - HYPERLIPIDAEMIA [None]
  - HYPERTENSION [None]
  - NASAL DISORDER [None]
  - PAIN IN EXTREMITY [None]
  - PYREXIA [None]
